FAERS Safety Report 13071044 (Version 2)
Quarter: 2017Q1

REPORT INFORMATION
  Report Type: Spontaneous
  Country: DE (occurrence: DE)
  Receive Date: 20161229
  Receipt Date: 20170120
  Transmission Date: 20170428
  Serious: Yes (Congenital Anomaly, Other)
  Sender: FDA-Public Use
  Company Number: DE-009507513-1612DEU011986

PATIENT
  Age: 1 Day
  Sex: Female

DRUGS (21)
  1. PROGESTAN [Concomitant]
     Active Substance: PROGESTERONE
     Dosage: 100 MG, BID
     Route: 064
     Dates: start: 20151115, end: 20160317
  2. PROGYNOVA [Concomitant]
     Active Substance: ESTRADIOL VALERATE
     Dosage: 2 MG, QD
     Route: 064
     Dates: start: 20151115, end: 20160317
  3. THYROXIN [Concomitant]
     Active Substance: LEVOTHYROXINE
     Dosage: 75 MICROGRAM, QD
     Route: 064
     Dates: start: 20151115, end: 20160317
  4. ZOFRAN [Concomitant]
     Active Substance: ONDANSETRON HYDROCHLORIDE
     Dosage: 8 MG, TID
     Route: 064
  5. BETAMETHASONE. [Concomitant]
     Active Substance: BETAMETHASONE
     Route: 064
  6. CYTARABINE. [Suspect]
     Active Substance: CYTARABINE
     Dosage: 400 MG, QD
     Route: 064
     Dates: start: 20160308, end: 20160314
  7. CLEXANE (ENOXAPARIN SODIUM) [Concomitant]
     Active Substance: ENOXAPARIN SODIUM
     Dosage: TERMINATED BEFORE WEEK 17 4/7
     Route: 064
  8. ACYCLOVIR. [Concomitant]
     Active Substance: ACYCLOVIR
     Dosage: 400 MG, BID
     Route: 064
     Dates: start: 20160308, end: 20160317
  9. CIPROFLOXACIN. [Concomitant]
     Active Substance: CIPROFLOXACIN
     Dosage: 500 MG, BID; WAS PLANED IF NEUTROPHILS ARE { 500 /MICRO-L
     Route: 064
  10. COTRIM FORTE [Concomitant]
     Active Substance: SULFAMETHOXAZOLE\TRIMETHOPRIM
     Dosage: 800/160 MG, 3X WEEK
     Route: 064
  11. VESANOID [Suspect]
     Active Substance: TRETINOIN
     Dosage: 30 MG, TID
     Route: 064
     Dates: start: 20160308, end: 20160530
  12. AMPHO MORONAL [Concomitant]
     Active Substance: AMPHOTERICIN B
     Dosage: UNK
     Route: 064
     Dates: start: 20160308, end: 20160317
  13. VOMEX A [Concomitant]
     Active Substance: DIMENHYDRINATE
     Dosage: PERHAPS LONGER THERAOY
     Route: 064
     Dates: start: 20160308, end: 20160317
  14. MAGNESIUM VERLA (MAGNESIUM ASPARTATE (+) MAGNESIUM CITRATE (+) MAGNESI [Concomitant]
     Dosage: UNK
     Route: 064
     Dates: start: 20160317, end: 20160317
  15. NOXAFIL [Suspect]
     Active Substance: POSACONAZOLE
     Dosage: 200 MG, TID; WAS PLANNED FOR MARCH, 23RD, ALTERNATIVELY DISCUSSED DRUG: DIFLUCAN
     Route: 064
  16. DAUNORUBICIN [Suspect]
     Active Substance: DAUNORUBICIN
     Dosage: 120 MG/DAY
     Route: 064
     Dates: start: 20160308, end: 20160530
  17. METOCLOPRAMIDE HYDROCHLORIDE. [Concomitant]
     Active Substance: METOCLOPRAMIDE HYDROCHLORIDE
     Dosage: ON DEMAND
     Route: 064
  18. ALLOPURINOL. [Suspect]
     Active Substance: ALLOPURINOL
     Dosage: 300 MG, QD
     Route: 064
     Dates: start: 20160317, end: 20160317
  19. DIFLUCAN [Suspect]
     Active Substance: FLUCONAZOLE
     Dosage: 400 MG, QD; DISCUSSED AS ALTERNATIVE TO NOXAFIL. PLANNED FROM MARCH, 18TH
     Route: 064
  20. ROCEPHIN [Concomitant]
     Active Substance: CEFTRIAXONE SODIUM
     Dosage: 2 G, QD
     Route: 064
     Dates: start: 20160308, end: 20160317
  21. PANTOZOL [Concomitant]
     Active Substance: PANTOPRAZOLE SODIUM
     Dosage: 40 MG, QD
     Route: 064
     Dates: start: 20160308, end: 20160317

REACTIONS (5)
  - Bone disorder [Not Recovered/Not Resolved]
  - Thrombocytosis [Recovered/Resolved]
  - Patent ductus arteriosus [Recovered/Resolved]
  - Small for dates baby [Not Recovered/Not Resolved]
  - Premature baby [Recovering/Resolving]

NARRATIVE: CASE EVENT DATE: 20160630
